FAERS Safety Report 5532045-2 (Version None)
Quarter: 2007Q4

REPORT INFORMATION
  Report Type: 
  Country: None (occurrence: None)
  Receive Date: 20071203
  Receipt Date: 20071116
  Transmission Date: 20080405
  Serious: Yes (Other)
  Sender: FDA-Public Use
  Company Number: B0380420A

PATIENT
  Sex: Female

DRUGS (6)
  1. SEROXAT [Suspect]
     Indication: DRUG USE FOR UNKNOWN INDICATION
     Route: 065
  2. SOLPADEINE [Concomitant]
  3. DIAZEPAM [Concomitant]
  4. ALCOHOL [Concomitant]
  5. COCODAMOL [Concomitant]
  6. THIORIDAZINE [Concomitant]

REACTIONS (3)
  - DRUG WITHDRAWAL SYNDROME [None]
  - MEMORY IMPAIRMENT [None]
  - SUICIDAL IDEATION [None]
